APPROVED DRUG PRODUCT: ADAPALENE
Active Ingredient: ADAPALENE
Strength: 0.1%
Dosage Form/Route: GEL;TOPICAL
Application: A215940 | Product #001
Applicant: SUN PHARMA CANADA INC
Approved: Jan 14, 2022 | RLD: No | RS: No | Type: OTC